FAERS Safety Report 7294619-0 (Version None)
Quarter: 2011Q1

REPORT INFORMATION
  Report Type: 
  Country: None (occurrence: None)
  Receive Date: 20110216
  Receipt Date: 20100219
  Transmission Date: 20110831
  Serious: No
  Sender: FDA-Public Use
  Company Number: 2010BI006855

PATIENT
  Sex: Female

DRUGS (4)
  1. ULTRAM [Concomitant]
     Indication: PAIN IN EXTREMITY
  2. TYSABRI [Suspect]
     Indication: MULTIPLE SCLEROSIS
     Route: 042
     Dates: start: 20100204
  3. ULTRAM [Concomitant]
  4. AVONEX [Concomitant]
     Indication: MULTIPLE SCLEROSIS
     Route: 030

REACTIONS (10)
  - UPPER RESPIRATORY TRACT CONGESTION [None]
  - SKIN DISCOLOURATION [None]
  - HEADACHE [None]
  - SOMNOLENCE [None]
  - NASOPHARYNGITIS [None]
  - FATIGUE [None]
  - PAIN IN EXTREMITY [None]
  - MEMORY IMPAIRMENT [None]
  - OROPHARYNGEAL PAIN [None]
  - LETHARGY [None]
